FAERS Safety Report 7207345-0 (Version None)
Quarter: 2010Q4

REPORT INFORMATION
  Report Type: 
  Country: None (occurrence: None)
  Receive Date: 20101221
  Receipt Date: 20101206
  Transmission Date: 20110411
  Serious: Yes (Disabling)
  Sender: FDA-Public Use
  Company Number: ACO_20814_2010

PATIENT
  Age: 49 Year
  Sex: Female
  Weight: 140.6 kg

DRUGS (4)
  1. AMPYRA [Suspect]
     Indication: GAIT DISTURBANCE
     Dosage: 10MG, Q 12 HRS, ORAL
     Route: 048
     Dates: start: 20101101
  2. TEGRETOL (CARBMAMAZEPINE) [Concomitant]
  3. MEXILETINE HCL [Concomitant]
  4. OXYBUTYNIN CHLORIDE [Concomitant]

REACTIONS (3)
  - CONDITION AGGRAVATED [None]
  - GAIT DISTURBANCE [None]
  - WHEELCHAIR USER [None]
